FAERS Safety Report 6395696-1 (Version None)
Quarter: 2009Q4

REPORT INFORMATION
  Report Type: 
  Country: None (occurrence: None)
  Receive Date: 20091009
  Receipt Date: 20091005
  Transmission Date: 20100525
  Serious: Yes (Death, Other)
  Sender: FDA-Public Use
  Company Number: PHHY2009CA05053

PATIENT
  Sex: Male

DRUGS (7)
  1. CLOZARIL [Suspect]
     Indication: SELF INJURIOUS BEHAVIOUR
     Dosage: UNK
     Dates: start: 20080526
  2. QUETIAPINE [Suspect]
     Dosage: 1200 MG AT NIGHT AND 300 MG TID
  3. CLONAZEPAM [Concomitant]
     Dosage: 4 MG AT NIGHT
  4. DOCUSATE [Concomitant]
     Dosage: 100 MG, BID
  5. FLUTICASONE PROPIONATE [Concomitant]
     Dosage: 50 UG TWO SPRAY OD EACH NOSTRIL
  6. LAMOTRIGINE [Concomitant]
     Dosage: 300 MG AT NIGHT
  7. PROPRANOLOL [Concomitant]
     Dosage: 60 MG, TID

REACTIONS (2)
  - ANTIPSYCHOTIC DRUG LEVEL INCREASED [None]
  - DEATH [None]
